FAERS Safety Report 25388082 (Version 2)
Quarter: 2025Q3

REPORT INFORMATION
  Report Type: Spontaneous
  Country: US (occurrence: US)
  Receive Date: 20250603
  Receipt Date: 20250702
  Transmission Date: 20251020
  Serious: No
  Sender: TOLMAR
  Company Number: CID000000000000246

PATIENT
  Sex: Male

DRUGS (3)
  1. ELIGARD [Suspect]
     Active Substance: LEUPROLIDE ACETATE
     Indication: Prostate cancer
  2. ELIGARD [Suspect]
     Active Substance: LEUPROLIDE ACETATE
  3. DEVICE [Suspect]
     Active Substance: DEVICE
     Indication: Prostate cancer

REACTIONS (6)
  - Intercepted product preparation error [Unknown]
  - Wrong technique in product usage process [Unknown]
  - Occupational exposure to product [Unknown]
  - Device leakage [Unknown]
  - Device issue [Unknown]
  - Product quality issue [Unknown]
